FAERS Safety Report 5596162-3 (Version None)
Quarter: 2008Q1

REPORT INFORMATION
  Report Type: 
  Country: None (occurrence: None)
  Receive Date: 20080118
  Receipt Date: 20080108
  Transmission Date: 20080703
  Serious: No
  Sender: FDA-Public Use
  Company Number: CH-BAXTER-2008BH000367

PATIENT
  Age: 53 Year
  Sex: Female
  Weight: 38 kg

DRUGS (2)
  1. HEPARIN SODIUM 1,000 UNITS AND SODIUM CHLORIDE 0.9% [Suspect]
     Indication: CAROTID ARTERY DISSECTION
     Route: 042
  2. HEPARIN SODIUM 1,000 UNITS AND SODIUM CHLORIDE 0.9% [Suspect]
     Route: 042

REACTIONS (2)
  - CAROTID ARTERY OCCLUSION [None]
  - OVERDOSE [None]
